FAERS Safety Report 9247320 (Version 3)
Quarter: 2014Q1

REPORT INFORMATION
  Report Type: Spontaneous
  Country: FR (occurrence: FR)
  Receive Date: 20130423
  Receipt Date: 20140213
  Transmission Date: 20141002
  Serious: Yes (Hospitalization, Other)
  Sender: FDA-Public Use
  Company Number: FR-AMGEN-FRASP2013028133

PATIENT
  Age: 65 Year
  Sex: Female
  Weight: 56 kg

DRUGS (6)
  1. FILGRASTIM [Suspect]
     Indication: PRODUCT USED FOR UNKNOWN INDICATION
     Dosage: UNK
     Route: 065
  2. TRASTUZUMAB EMTANSINE [Suspect]
     Indication: BREAST CANCER
     Dosage: 204.5 MG, 1 IN 3 WK
     Route: 042
     Dates: start: 20121107
  3. DOCETAXEL [Suspect]
     Indication: BREAST CANCER
     Dosage: 161 MG, 1 IN 3 WK
     Route: 042
     Dates: start: 20121107
  4. CALCIPRAT [Concomitant]
     Dosage: 500 MG, UNK
  5. UVEDOSE [Concomitant]
     Dosage: 100000 IU, UNK
  6. VENTOLIN                           /00139501/ [Concomitant]
     Dosage: UNK UNK, 1 IN 1 AS REQUIRED

REACTIONS (2)
  - Melanoderma [Recovered/Resolved]
  - Mucosal inflammation [Recovered/Resolved]
